FAERS Safety Report 26081966 (Version 2)
Quarter: 2025Q4

REPORT INFORMATION
  Report Type: Spontaneous
  Country: US (occurrence: US)
  Receive Date: 20251124
  Receipt Date: 20251203
  Transmission Date: 20260117
  Serious: No
  Sender: TEVA
  Company Number: US-TEVA-VS-3389273

PATIENT
  Age: 62 Year
  Sex: Female

DRUGS (3)
  1. PROAIR HFA [Suspect]
     Active Substance: ALBUTEROL SULFATE
     Indication: Asthma
     Dosage: 90MCG/DOSE, INHALATION METERED DOSE AEROSOL
     Route: 055
     Dates: start: 20250924
  2. PROAIR HFA [Suspect]
     Active Substance: ALBUTEROL SULFATE
     Dosage: 90MCG/DOSE, INHALATION METERED DOSE AEROSOL, S/N#11514441371961
     Route: 055
     Dates: start: 20251023
  3. PROAIR HFA [Suspect]
     Active Substance: ALBUTEROL SULFATE
     Dosage: 90MCG/DOSE, INHALATION METERED DOSE AEROSOL, S/N#11572466066100
     Route: 055
     Dates: start: 20251027

REACTIONS (14)
  - Heart rate increased [Unknown]
  - Drug ineffective [Unknown]
  - Patient dissatisfaction with treatment [Unknown]
  - Device difficult to use [Unknown]
  - Feeling abnormal [Unknown]
  - Dyspnoea [Unknown]
  - Product quality issue [Unknown]
  - Cough [Unknown]
  - Dizziness [Unknown]
  - Headache [Unknown]
  - Oropharyngeal discomfort [Unknown]
  - Oropharyngeal pain [Unknown]
  - Productive cough [Unknown]
  - Product taste abnormal [Unknown]

NARRATIVE: CASE EVENT DATE: 20251001
